FAERS Safety Report 11529622 (Version 1)
Quarter: 2015Q3

REPORT INFORMATION
  Report Type: Spontaneous
  Country: US (occurrence: None)
  Receive Date: 20150918
  Receipt Date: 20150918
  Transmission Date: 20151125
  Serious: Yes (Other)
  Sender: FDA-Public Use
  Company Number: None

PATIENT
  Age: 65 Year
  Sex: Female
  Weight: 73.48 kg

DRUGS (7)
  1. CLARITHROMYCIN 500 MG [Suspect]
     Active Substance: CLARITHROMYCIN
     Indication: BACTERIAL INFECTION
     Dosage: BY MOUTH
     Dates: start: 20150630, end: 20150706
  2. LOSARTAN. [Concomitant]
     Active Substance: LOSARTAN
  3. ONE A DAY FOR WOMENS [Concomitant]
  4. AMLODIPINE BESYLATE. [Concomitant]
     Active Substance: AMLODIPINE BESYLATE
  5. AMOXICILLIN 500 MG [Suspect]
     Active Substance: AMOXICILLIN
     Dosage: PILLS
  6. KLOR-CON [Concomitant]
     Active Substance: POTASSIUM CHLORIDE
  7. METFORMINE [Concomitant]
     Active Substance: METFORMIN HYDROCHLORIDE

REACTIONS (3)
  - Insomnia [None]
  - Vulvovaginal discomfort [None]
  - Confusional state [None]

NARRATIVE: CASE EVENT DATE: 20150624
